FAERS Safety Report 7713576-3 (Version None)
Quarter: 2011Q3

REPORT INFORMATION
  Report Type: 
  Country: None (occurrence: None)
  Receive Date: 20110823
  Receipt Date: 20110809
  Transmission Date: 20111222
  Serious: Yes (Death)
  Sender: FDA-Public Use
  Company Number: MC201100365

PATIENT
  Sex: Male

DRUGS (2)
  1. ANGIOMAX [Suspect]
     Indication: PERCUTANEOUS CORONARY INTERVENTION
     Dosage: INFUSION, INTRAVENOUS
     Route: 042
     Dates: start: 20110201, end: 20110201
  2. ANGIOMAX [Suspect]
     Indication: PERCUTANEOUS CORONARY INTERVENTION
     Dosage: INFUSION, INTRAVENOUS
     Route: 042
     Dates: start: 20110201, end: 20110201

REACTIONS (1)
  - CARDIAC ARREST [None]
